FAERS Safety Report 8774651 (Version 2)
Quarter: 2012Q4

REPORT INFORMATION
  Report Type: 
  Country: ES (occurrence: ES)
  Receive Date: 20120907
  Receipt Date: 20121023
  Transmission Date: 20130627
  Serious: Yes (Other)
  Sender: FDA-Public Use
  Company Number: ES-AMGEN-ESPSP2012056143

PATIENT
  Age: 50 Year
  Sex: Female
  Weight: 68 kg

DRUGS (6)
  1. ENBREL [Suspect]
     Indication: RHEUMATOID ARTHRITIS
     Dosage: 50 mg, weekly
     Route: 058
     Dates: start: 20120604, end: 20120806
  2. DACORTIN [Concomitant]
     Indication: RHEUMATOID ARTHRITIS
     Dosage: 5 mg, (1-1/2-1)
     Route: 048
     Dates: start: 2010
  3. INACID                             /00003801/ [Concomitant]
     Indication: RHEUMATOID ARTHRITIS
     Dosage: 1 DF, if required
     Route: 048
     Dates: start: 2010
  4. IDEOS [Concomitant]
     Indication: RHEUMATOID ARTHRITIS
     Dosage: 1 DF, 1x/day
     Route: 048
     Dates: start: 2010
  5. FOLIC ACID [Concomitant]
     Indication: RHEUMATOID ARTHRITIS
     Dosage: 1 DF, 1x/day
     Route: 048
     Dates: start: 2010
  6. METOJECT [Concomitant]
     Indication: RHEUMATOID ARTHRITIS
     Dosage: 1 DF, weekly
     Route: 058
     Dates: start: 2010

REACTIONS (2)
  - Cellulitis [Recovered/Resolved]
  - Musculoskeletal stiffness [Recovered/Resolved]
